FAERS Safety Report 22139583 (Version 2)
Quarter: 2024Q3

REPORT INFORMATION
  Report Type: Report from Study
  Country: CA (occurrence: CA)
  Receive Date: 20230327
  Receipt Date: 20240803
  Transmission Date: 20241016
  Serious: Yes (Other)
  Sender: ROCHE
  Company Number: CA-ROCHE-3274121

PATIENT
  Age: 16 Year
  Sex: Female

DRUGS (3)
  1. ACTEMRA [Suspect]
     Active Substance: TOCILIZUMAB
     Indication: Still^s disease
     Dosage: DRUG DOSE FIRST ADMINISTERED IS 162 MG MILLIGRAM(S)
     Route: 058
     Dates: start: 20220706
  2. METHOTREXATE [Concomitant]
     Active Substance: METHOTREXATE
     Indication: Juvenile idiopathic arthritis
     Route: 048
  3. METHOTREXATE [Concomitant]
     Active Substance: METHOTREXATE
     Route: 048

REACTIONS (2)
  - Spinal cord neoplasm [Recovered/Resolved]
  - Injection site pain [Unknown]

NARRATIVE: CASE EVENT DATE: 20230101
